FAERS Safety Report 7478212-2 (Version None)
Quarter: 2011Q2

REPORT INFORMATION
  Report Type: 
  Country: None (occurrence: None)
  Receive Date: 20110513
  Receipt Date: 20110504
  Transmission Date: 20111010
  Serious: Yes (Hospitalization)
  Sender: FDA-Public Use
  Company Number: PHHY2011MX38716

PATIENT
  Age: 78 Year
  Sex: Female

DRUGS (3)
  1. ZOLEDRONIC ACID [Suspect]
     Dosage: 5 MG/100 ML
     Route: 042
  2. ZOLEDRONIC ACID [Suspect]
     Indication: OSTEOPOROSIS
     Dosage: 5 MG/100 ML
     Route: 042
     Dates: start: 20080401
  3. ZOLEDRONIC ACID [Suspect]
     Dosage: 5 MG/100 ML
     Route: 042

REACTIONS (2)
  - FOOT FRACTURE [None]
  - RIB FRACTURE [None]
